FAERS Safety Report 13105952 (Version 3)
Quarter: 2017Q2

REPORT INFORMATION
  Report Type: Report from Study
  Country: US (occurrence: US)
  Receive Date: 20170111
  Receipt Date: 20170421
  Transmission Date: 20170830
  Serious: Yes (Death, Other)
  Sender: FDA-Public Use
  Company Number: US-JNJFOC-20161216252

PATIENT
  Age: 47 Year
  Sex: Male
  Weight: 101 kg

DRUGS (4)
  1. IMBRUVICA [Suspect]
     Active Substance: IBRUTINIB
     Indication: CHRONIC LYMPHOCYTIC LEUKAEMIA STAGE 4
     Route: 048
     Dates: start: 20160520, end: 201612
  2. IMBRUVICA [Suspect]
     Active Substance: IBRUTINIB
     Indication: B-CELL SMALL LYMPHOCYTIC LYMPHOMA STAGE IV
     Route: 048
     Dates: start: 20160521
  3. IMBRUVICA [Suspect]
     Active Substance: IBRUTINIB
     Indication: CHRONIC LYMPHOCYTIC LEUKAEMIA STAGE 4
     Route: 048
     Dates: start: 20160521
  4. IMBRUVICA [Suspect]
     Active Substance: IBRUTINIB
     Indication: B-CELL SMALL LYMPHOCYTIC LYMPHOMA STAGE IV
     Route: 048
     Dates: start: 20160520, end: 201612

REACTIONS (11)
  - Disease progression [Unknown]
  - Lymphadenopathy [Unknown]
  - Treatment failure [Unknown]
  - Sepsis [Fatal]
  - Abdominal mass [Unknown]
  - Dyspnoea [Fatal]
  - Creatinine renal clearance abnormal [Unknown]
  - Insomnia [Unknown]
  - Tumour lysis syndrome [Fatal]
  - Weight decreased [Unknown]
  - Blood creatinine abnormal [Unknown]

NARRATIVE: CASE EVENT DATE: 201612
